FAERS Safety Report 4927892-1 (Version None)
Quarter: 2006Q1

REPORT INFORMATION
  Report Type: 
  Country: None (occurrence: None)
  Receive Date: 20060222
  Receipt Date: 20060207
  Transmission Date: 20060701
  Serious: Yes (Death)
  Sender: FDA-Public Use
  Company Number: 2006-US-00669

PATIENT
  Age: 59 Year
  Sex: Male

DRUGS (2)
  1. CLOZAPINE [Suspect]
     Indication: ENCEPHALOPATHY
     Dosage: 400 MG
     Dates: start: 20021001, end: 20060101
  2. CLOZAPINE [Suspect]
     Indication: MENTAL RETARDATION SEVERITY UNSPECIFIED
     Dosage: 400 MG
     Dates: start: 20021001, end: 20060101

REACTIONS (1)
  - PNEUMONIA ASPIRATION [None]
